FAERS Safety Report 4645533-8 (Version None)
Quarter: 2005Q2

REPORT INFORMATION
  Report Type: 
  Country: None (occurrence: None)
  Receive Date: 20050425
  Receipt Date: 20050412
  Transmission Date: 20051028
  Serious: Yes (Death, Hospitalization, Other)
  Sender: FDA-Public Use
  Company Number: 2005044751

PATIENT
  Age: 77 Year
  Sex: Male
  Weight: 64.8 kg

DRUGS (25)
  1. DIFLUCAN [Suspect]
     Indication: SYSTEMIC CANDIDA
     Dosage: SEE IMAGE
     Route: 042
     Dates: start: 20050131, end: 20050208
  2. DIFLUCAN [Suspect]
     Indication: SYSTEMIC CANDIDA
     Dosage: SEE IMAGE
     Route: 042
     Dates: start: 20050209, end: 20050214
  3. DIFLUCAN [Suspect]
     Indication: SYSTEMIC CANDIDA
     Dosage: SEE IMAGE
     Route: 048
     Dates: start: 20050304, end: 20050305
  4. DIFLUCAN [Suspect]
     Indication: SYSTEMIC CANDIDA
     Dosage: SEE IMAGE
     Route: 048
     Dates: start: 20020305, end: 20050306
  5. PRODIG (FOSTFLUCONAZOLE) [Suspect]
     Indication: SYSTEMIC CANDIDA
     Dosage: 1009 MG (1009 MG, 1 IN 1 D), INTRAVENOUS
     Route: 042
     Dates: start: 20050302, end: 20050303
  6. MEROPENEM (MEROPENEM) [Concomitant]
  7. BETAMETHASONE (NETAMETHASONE) [Concomitant]
  8. MICAFUNGIN (MICAFUNGIN) [Concomitant]
  9. CADEXOMER IODINE (CADEXOMER IODINE) [Concomitant]
  10. LIVACT (AMINO ACIDS NOS) [Concomitant]
  11. PRANLUKAST (PRANLUKAST) [Concomitant]
  12. AMPHOTERICIN B [Concomitant]
  13. MICONAZOLE NITRATE [Concomitant]
  14. LANSOPRAZOLE [Concomitant]
  15. POSTERISAN (ESCHERICHIA COLI, LYOPHILIZED, PHENOL) [Concomitant]
  16. PREDNISONE [Concomitant]
  17. MONTELUKAST SODIUM (MONTELUKAST SODIUM) [Concomitant]
  18. SALMETEROL XINAFOATE (SALMETEROL XINAFOATE) [Concomitant]
  19. FLUTICASONE PROPIONATE [Concomitant]
  20. FENOTEROL HYDROBROMIDE (FENOTEROL HYDROBROMIDE) [Concomitant]
  21. OXITROPIUM BROMIDE (OXITROPIUM BROMIDE) [Concomitant]
  22. THEOPHYLLINE [Concomitant]
  23. METILDIGOXIN (METILDIGOXIN) [Concomitant]
  24. FUROSEMIDE [Concomitant]
  25. CROMOGLICATE SODIUM (CROMOGLICATE SODIUM) [Concomitant]

REACTIONS (15)
  - ANOREXIA [None]
  - ASTHMA [None]
  - CONVULSION [None]
  - DEHYDRATION [None]
  - DEPRESSED LEVEL OF CONSCIOUSNESS [None]
  - HEART RATE DECREASED [None]
  - HYPERSENSITIVITY [None]
  - INFUSION RELATED REACTION [None]
  - MOUTH BREATHING [None]
  - OEDEMA PERIPHERAL [None]
  - REFUSAL OF TREATMENT BY PATIENT [None]
  - RENAL FAILURE ACUTE [None]
  - STOMATITIS [None]
  - STRIDOR [None]
  - SYSTEMIC CANDIDA [None]
